FAERS Safety Report 18281576 (Version 2)
Quarter: 2020Q4

REPORT INFORMATION
  Report Type: Report from Study
  Country: PK (occurrence: PK)
  Receive Date: 20200918
  Receipt Date: 20201020
  Transmission Date: 20210113
  Serious: Yes (Death, Other)
  Sender: FDA-Public Use
  Company Number: NVSC2020PK254752

PATIENT
  Age: 67 Year
  Sex: Female

DRUGS (3)
  1. CONCOR [Concomitant]
     Active Substance: BISOPROLOL FUMARATE
     Indication: HYPERTENSION
     Dosage: 2.5 MG, QD
     Route: 048
     Dates: start: 20180423
  2. DIOVAN [Suspect]
     Active Substance: VALSARTAN
     Indication: HYPERTENSION
     Dosage: 160 MG, QD
     Route: 048
     Dates: start: 20180423
  3. LASIX [Concomitant]
     Active Substance: FUROSEMIDE
     Indication: HYPERTENSION
     Dosage: 20 MG, QD
     Route: 048
     Dates: start: 20180423

REACTIONS (10)
  - Pain in jaw [Fatal]
  - Hyperhidrosis [Fatal]
  - Pain in extremity [Fatal]
  - Dizziness [Fatal]
  - Nausea [Fatal]
  - Vomiting [Fatal]
  - Chest discomfort [Fatal]
  - Myocardial infarction [Fatal]
  - Dyspnoea [Fatal]
  - Angina pectoris [Fatal]
